FAERS Safety Report 6388686-6 (Version None)
Quarter: 2009Q4

REPORT INFORMATION
  Report Type: 
  Country: None (occurrence: None)
  Receive Date: 20091002
  Receipt Date: 20091002
  Transmission Date: 20100525
  Serious: Yes (Life-Threatening, Hospitalization)
  Sender: FDA-Public Use
  Company Number: None

PATIENT
  Age: 72 Year
  Sex: Female
  Weight: 86.1834 kg

DRUGS (1)
  1. LISINOPRIL [Suspect]
     Dosage: 40 MG 1 TAKEN ONLY PO PILL ONE TAKEN ONLY
     Route: 048
     Dates: start: 20090722, end: 20090722

REACTIONS (2)
  - ANAPHYLACTIC SHOCK [None]
  - PAIN [None]
